FAERS Safety Report 13754233 (Version 1)
Quarter: 2017Q3

REPORT INFORMATION
  Report Type: Spontaneous
  Country: US (occurrence: US)
  Receive Date: 20170714
  Receipt Date: 20170714
  Transmission Date: 20171127
  Serious: Yes (Other)
  Sender: FDA-Public Use
  Company Number: None

PATIENT
  Age: 57 Year
  Sex: Female
  Weight: 64.47 kg

DRUGS (6)
  1. CLEARLAX [Suspect]
     Active Substance: POLYETHYLENE GLYCOL 3350
     Indication: COLONOSCOPY
     Dosage: 17G X4 ONCE ORAL
     Route: 048
     Dates: start: 20170703
  2. CLEARLAX [Suspect]
     Active Substance: POLYETHYLENE GLYCOL 3350
     Indication: BOWEL PREPARATION
     Dosage: 17G X4 ONCE ORAL
     Route: 048
     Dates: start: 20170703
  3. MOVIPREP [Suspect]
     Active Substance: ASCORBIC ACID\POLYETHYLENE GLYCOL 3350\POTASSIUM CHLORIDE\SODIUM ASCORBATE\SODIUM CHLORIDE\SODIUM SULFATE
     Indication: BOWEL PREPARATION
     Dosage: SPLIT REGIMEN TWICE ORAL
     Route: 048
     Dates: start: 20170704, end: 20170705
  4. MOVIPREP [Suspect]
     Active Substance: ASCORBIC ACID\POLYETHYLENE GLYCOL 3350\POTASSIUM CHLORIDE\SODIUM ASCORBATE\SODIUM CHLORIDE\SODIUM SULFATE
     Indication: COLONOSCOPY
     Dosage: SPLIT REGIMEN TWICE ORAL
     Route: 048
     Dates: start: 20170704, end: 20170705
  5. LORATADINE. [Concomitant]
     Active Substance: LORATADINE
  6. PRAVASTATIN SODIUM. [Concomitant]
     Active Substance: PRAVASTATIN SODIUM

REACTIONS (4)
  - Weight increased [None]
  - Peripheral swelling [None]
  - Joint swelling [None]
  - Blood pressure systolic increased [None]

NARRATIVE: CASE EVENT DATE: 20170704
